FAERS Safety Report 11156043 (Version 1)
Quarter: 2015Q2

REPORT INFORMATION
  Report Type: Spontaneous
  Country: US (occurrence: None)
  Receive Date: 20150601
  Receipt Date: 20150601
  Transmission Date: 20150821
  Serious: Yes (Death)
  Sender: FDA-Public Use
  Company Number: None

PATIENT
  Age: 65 Year
  Sex: Female
  Weight: 56.7 kg

DRUGS (1)
  1. ENBREL [Suspect]
     Active Substance: ETANERCEPT
     Indication: RHEUMATOID ARTHRITIS
     Dosage: EVERY FRIDAY
     Route: 030

REACTIONS (12)
  - Vomiting [None]
  - Sinusitis [None]
  - Fall [None]
  - Arthropod bite [None]
  - Gallbladder disorder [None]
  - Pyrexia [None]
  - Nausea [None]
  - Gait disturbance [None]
  - Immune system disorder [None]
  - Multi-organ failure [None]
  - Swelling [None]
  - Body temperature decreased [None]

NARRATIVE: CASE EVENT DATE: 20150516
